FAERS Safety Report 4668227-1 (Version None)
Quarter: 2005Q2

REPORT INFORMATION
  Report Type: 
  Country: None (occurrence: None)
  Receive Date: 20050523
  Receipt Date: 20050216
  Transmission Date: 20051028
  Serious: Yes (Other)
  Sender: FDA-Public Use
  Company Number: PHEH2005US02139

PATIENT
  Age: 52 Year
  Sex: Female

DRUGS (7)
  1. ZOMETA [Suspect]
     Indication: METASTASES TO BONE
     Dosage: 4 MG EVERY MONTH
     Dates: start: 20030905, end: 20041210
  2. XELODA [Concomitant]
     Indication: BREAST CANCER
     Dates: start: 20040901
  3. HERCEPTIN [Concomitant]
     Indication: BREAST CANCER
     Dates: start: 20030905
  4. NAVELBINE [Concomitant]
     Indication: BREAST CANCER
     Dates: start: 20030905, end: 20040816
  5. PAXIL [Concomitant]
     Indication: DEPRESSION
     Dates: start: 20030101
  6. LORAZEPAM [Concomitant]
     Indication: ANXIETY
     Dates: start: 20040401
  7. ARANESP [Concomitant]
     Indication: ANAEMIA
     Dosage: 200-300 MG IM EVERY 2-3 WEEKS
     Dates: start: 20040521, end: 20040611

REACTIONS (6)
  - ENDODONTIC PROCEDURE [None]
  - IMPAIRED HEALING [None]
  - OSTEONECROSIS [None]
  - PAIN [None]
  - TOOTH EXTRACTION [None]
  - WOUND DEBRIDEMENT [None]
